FAERS Safety Report 5298088-1 (Version None)
Quarter: 2007Q2

REPORT INFORMATION
  Report Type: 
  Country: None (occurrence: None)
  Receive Date: 20070416
  Receipt Date: 20070404
  Transmission Date: 20071010
  Serious: Yes (Other)
  Sender: FDA-Public Use
  Company Number: PHBS2007BR04591

PATIENT
  Age: 63 Year
  Sex: Male

DRUGS (5)
  1. ZOMETA [Suspect]
     Indication: METASTASES TO BONE
     Dosage: 4 MG, QMO
     Route: 042
     Dates: start: 20060301
  2. CASODEX [Concomitant]
     Dates: start: 20060401, end: 20070101
  3. ZOLADEX [Concomitant]
     Dates: start: 20060401, end: 20070101
  4. AMIODARONE HCL [Concomitant]
  5. RENAGEL [Concomitant]

REACTIONS (7)
  - COMPUTERISED TOMOGRAM [None]
  - GINGIVAL CYST [None]
  - ORAL INFECTION [None]
  - OSTEONECROSIS [None]
  - PERIODONTAL DISEASE [None]
  - PHYSICAL EXAMINATION [None]
  - TOOTH EXTRACTION [None]
